FAERS Safety Report 6490583-2 (Version None)
Quarter: 2009Q4

REPORT INFORMATION
  Report Type: 
  Country: None (occurrence: None)
  Receive Date: 20091211
  Receipt Date: 20091203
  Transmission Date: 20100525
  Serious: Yes (Other)
  Sender: FDA-Public Use
  Company Number: US-PFIZER INC-2009306338

PATIENT
  Sex: Female

DRUGS (2)
  1. NELFINAVIR MESILATE [Suspect]
     Route: 064
  2. LAMIVUDINE + ZIDOVUDINE [Suspect]
     Route: 064

REACTIONS (3)
  - DRUG EXPOSURE DURING PREGNANCY [None]
  - HYPERPARATHYROIDISM [None]
  - MITOCHONDRIAL TOXICITY [None]
